FAERS Safety Report 7170308-8 (Version None)
Quarter: 2010Q4

REPORT INFORMATION
  Report Type: 
  Country: None (occurrence: None)
  Receive Date: 20101217
  Receipt Date: 20101123
  Transmission Date: 20110411
  Serious: No
  Sender: FDA-Public Use
  Company Number: A0891845A

PATIENT
  Age: 22 Year
  Sex: Female
  Weight: 51.4 kg

DRUGS (1)
  1. LAMICTAL [Suspect]
     Dosage: 200MG TWICE PER DAY
     Route: 048
     Dates: start: 20101006

REACTIONS (4)
  - DIZZINESS [None]
  - DRUG ADMINISTRATION ERROR [None]
  - NAUSEA [None]
  - SOMNOLENCE [None]
